FAERS Safety Report 15851113 (Version 1)
Quarter: 2019Q1

REPORT INFORMATION
  Report Type: Spontaneous
  Country: PL (occurrence: PL)
  Receive Date: 20190122
  Receipt Date: 20190122
  Transmission Date: 20190417
  Serious: Yes (Other)
  Sender: FDA-Public Use
  Company Number: PL-ROCHE-2245485

PATIENT
  Sex: Male

DRUGS (1)
  1. ZELBORAF [Suspect]
     Active Substance: VEMURAFENIB
     Indication: MALIGNANT MELANOMA
     Route: 065

REACTIONS (7)
  - Hepatomegaly [Unknown]
  - Blood lactate dehydrogenase increased [Recovering/Resolving]
  - Skin lesion [Unknown]
  - Constipation [Unknown]
  - Pain [Unknown]
  - Hepatic pain [Unknown]
  - Diarrhoea [Unknown]

NARRATIVE: CASE EVENT DATE: 201810
